FAERS Safety Report 8550776-7 (Version None)
Quarter: 2012Q3

REPORT INFORMATION
  Report Type: 
  Country: None (occurrence: None)
  Receive Date: 20120730
  Receipt Date: 20120719
  Transmission Date: 20120928
  Serious: Yes (Death)
  Sender: FDA-Public Use
  Company Number: ES-CELGENEUS-144-20785-12053413

PATIENT
  Sex: Male

DRUGS (8)
  1. ASPIRIN [Concomitant]
     Dosage: 100 MILLIGRAM
     Route: 048
  2. AMITRIPTYLINE HCL [Concomitant]
     Dosage: 25 MILLIGRAM
     Route: 048
  3. THALIDOMIDE [Suspect]
     Indication: MULTIPLE MYELOMA
     Dosage: 50 MILLIGRAM
     Route: 048
     Dates: start: 20071001, end: 20101129
  4. ZOMETA [Concomitant]
     Dosage: 4 MILLIGRAM
     Route: 041
  5. SEVELAMER CARBONATE [Concomitant]
     Dosage: 2.4 GRAM
     Route: 048
  6. NAPROXEN [Concomitant]
     Dosage: 500 MILLIGRAM
     Route: 048
  7. OXYCONTIN [Concomitant]
     Dosage: 40 MILLIGRAM
     Route: 048
  8. OMEPRAZOLE [Concomitant]
     Dosage: 20 MILLIGRAM
     Route: 048

REACTIONS (3)
  - SEPTIC SHOCK [None]
  - CELLULITIS [None]
  - INTESTINAL OBSTRUCTION [None]
